FAERS Safety Report 5851928-7 (Version None)
Quarter: 2008Q3

REPORT INFORMATION
  Report Type: 
  Country: None (occurrence: None)
  Receive Date: 20080820
  Receipt Date: 20080808
  Transmission Date: 20090109
  Serious: Yes (Hospitalization, Other)
  Sender: FDA-Public Use
  Company Number: FR-PFIZER INC-2008057158

PATIENT
  Sex: Male
  Weight: 55 kg

DRUGS (4)
  1. LYRICA [Suspect]
     Dosage: DAILY DOSE:150MG
  2. BISOPROLOL FUMARATE [Concomitant]
  3. ASPIRIN [Concomitant]
  4. FUROSEMIDE [Concomitant]

REACTIONS (2)
  - ADENOMA BENIGN [None]
  - URINARY RETENTION [None]
